FAERS Safety Report 13345736 (Version 1)
Quarter: 2017Q1

REPORT INFORMATION
  Report Type: Spontaneous
  Country: US (occurrence: US)
  Receive Date: 20170316
  Receipt Date: 20170316
  Transmission Date: 20170428
  Serious: Yes (Other)
  Sender: FDA-Public Use
  Company Number: None

PATIENT
  Age: 74 Year
  Sex: Male

DRUGS (1)
  1. REVLIMID [Suspect]
     Active Substance: LENALIDOMIDE
     Indication: PLASMA CELL MYELOMA
     Dosage: 5MG DAILY X21D/28D ORAL
     Route: 048
     Dates: start: 201402, end: 201405

REACTIONS (3)
  - Anaemia [None]
  - Therapy cessation [None]
  - Rash [None]

NARRATIVE: CASE EVENT DATE: 20140519
